FAERS Safety Report 6139656-4 (Version None)
Quarter: 2009Q2

REPORT INFORMATION
  Report Type: 
  Country: None (occurrence: None)
  Receive Date: 20090401
  Receipt Date: 20081226
  Transmission Date: 20091009
  Serious: No
  Sender: FDA-Public Use
  Company Number: US-TYCO HEALTHCARE/MALLINCKRODT-T200801950

PATIENT
  Sex: Female
  Weight: 88.435 kg

DRUGS (3)
  1. TECHNETIUM TC 99M SESTAMIBI [Suspect]
     Indication: CARDIAC STRESS TEST
     Dosage: UNK
     Dates: start: 20081103, end: 20081103
  2. UNSPECIFIED SOLUTIONS [Suspect]
     Indication: VENTILATION/PERFUSION SCAN
     Dosage: UNK
     Dates: start: 20081103, end: 20081103
  3. ULTRA-TECHNEKOW [Concomitant]
     Indication: CARDIAC STRESS TEST
     Dosage: UNK
     Dates: start: 20081103, end: 20081103

REACTIONS (1)
  - WRONG DRUG ADMINISTERED [None]
